FAERS Safety Report 8559878-2 (Version None)
Quarter: 2012Q3

REPORT INFORMATION
  Report Type: 
  Country: None (occurrence: None)
  Receive Date: 20120802
  Receipt Date: 20120731
  Transmission Date: 20120928
  Serious: Yes (Other)
  Sender: FDA-Public Use
  Company Number: AU-PFIZER INC-2012186253

PATIENT
  Age: 49 Year
  Sex: Female

DRUGS (4)
  1. PROTHIADEN [Suspect]
     Indication: ANXIETY
     Dosage: UNK
  2. XANAX [Suspect]
     Indication: DEPRESSION
  3. XANAX [Suspect]
     Indication: ANXIETY
     Dosage: UNK
  4. PROTHIADEN [Suspect]
     Indication: DEPRESSION

REACTIONS (5)
  - DRUG INEFFECTIVE [None]
  - DRUG DEPENDENCE [None]
  - ACTIVITIES OF DAILY LIVING IMPAIRED [None]
  - WITHDRAWAL SYNDROME [None]
  - PAIN [None]
